FAERS Safety Report 18183199 (Version 1)
Quarter: 2020Q3

REPORT INFORMATION
  Report Type: Spontaneous
  Country: US (occurrence: US)
  Receive Date: 20200821
  Receipt Date: 20200821
  Transmission Date: 20201103
  Serious: Yes (Other)
  Sender: FDA-Public Use
  Company Number: US-BIOMARINAP-US-2020-131757

PATIENT
  Age: 38 Week
  Sex: Female
  Weight: 2.27 kg

DRUGS (2)
  1. PALYNZIQ [Suspect]
     Active Substance: PEGVALIASE-PQPZ
     Indication: FOETAL EXPOSURE DURING PREGNANCY
     Dosage: 10 MILLIGRAM, QD
     Route: 064
     Dates: start: 20130925, end: 20190815
  2. KUVAN [Suspect]
     Active Substance: SAPROPTERIN DIHYDROCHLORIDE
     Indication: FOETAL EXPOSURE DURING PREGNANCY
     Dosage: 1200 MILLIGRAM, QD
     Route: 064
     Dates: start: 20190819, end: 20200326

REACTIONS (1)
  - Foetal growth restriction [Unknown]

NARRATIVE: CASE EVENT DATE: 20200324
